FAERS Safety Report 8274278-0 (Version None)
Quarter: 2012Q2

REPORT INFORMATION
  Report Type: 
  Country: None (occurrence: None)
  Receive Date: 20120411
  Receipt Date: 20120411
  Transmission Date: 20120825
  Serious: Yes (Disabling)
  Sender: FDA-Public Use
  Company Number: None

PATIENT
  Sex: Male
  Weight: 70 kg

DRUGS (11)
  1. KLOR-CON [Concomitant]
     Route: 048
  2. ZYPREXA [Concomitant]
     Route: 048
  3. PROPRANOLOL [Concomitant]
     Route: 048
  4. NIACIN [Concomitant]
     Route: 048
  5. OLANZAPINE [Suspect]
     Indication: BIPOLAR DISORDER
     Dosage: 10 MG
     Route: 048
     Dates: start: 20120224, end: 20120312
  6. METFORMIN HCL [Concomitant]
     Route: 048
  7. GEMFIBROZIL [Concomitant]
     Route: 048
  8. FLUOXETINE [Concomitant]
     Route: 048
  9. TRIHEXYPHENIDYL HCL [Concomitant]
     Route: 048
  10. FUROSEMIDE [Concomitant]
     Route: 048
  11. GEODON [Concomitant]
     Route: 048

REACTIONS (2)
  - PRODUCT SUBSTITUTION ISSUE [None]
  - MUSCLE SPASMS [None]
